FAERS Safety Report 4471527-1 (Version None)
Quarter: 2004Q4

REPORT INFORMATION
  Report Type: 
  Country: None (occurrence: None)
  Receive Date: 20041007
  Receipt Date: 20041007
  Transmission Date: 20050328
  Serious: Yes (Life-Threatening, Hospitalization)
  Sender: FDA-Public Use
  Company Number: None

PATIENT
  Age: 10 Year
  Sex: Male
  Weight: 34.5 kg

DRUGS (9)
  1. TRAVASOL 10% [Suspect]
     Indication: GASTROSCHISIS
     Dosage: 26.5GM IN TPN, D, IV
     Route: 042
     Dates: start: 19971001
  2. TRAVASOL 10% [Suspect]
     Indication: SHORT-BOWEL SYNDROME
     Dosage: 26.5GM IN TPN, D, IV
     Route: 042
     Dates: start: 19971001
  3. INTRALIPID 10% [Suspect]
     Indication: GASTROSCHISIS
     Dosage: 300ML IN TPN, D, IV
     Route: 042
     Dates: start: 19971001, end: 20040915
  4. INTRALIPID 10% [Suspect]
     Indication: SHORT-BOWEL SYNDROME
     Dosage: 300ML IN TPN, D, IV
     Route: 042
     Dates: start: 19971001, end: 20040915
  5. INTRALIPID 10% [Suspect]
  6. 7.5% DEXTROSE [Concomitant]
  7. MULTI-VITAMIN [Concomitant]
  8. LEVOCARNITINE [Concomitant]
  9. HEPARIN [Concomitant]

REACTIONS (5)
  - HAEMATOCHEZIA [None]
  - HYPERBILIRUBINAEMIA [None]
  - INTESTINAL OBSTRUCTION [None]
  - JAUNDICE [None]
  - LIVER FUNCTION TEST ABNORMAL [None]
